FAERS Safety Report 9219202 (Version 1)
Quarter: 2013Q2

REPORT INFORMATION
  Report Type: Spontaneous
  Country: US (occurrence: None)
  Receive Date: 20130404
  Receipt Date: 20130404
  Transmission Date: 20140414
  Serious: Yes (Other)
  Sender: FDA-Public Use
  Company Number: US-1197197

PATIENT
  Sex: Female

DRUGS (1)
  1. MOXEZA 0.5% ALCON [Suspect]
     Route: 047
     Dates: start: 201302, end: 201302

REACTIONS (5)
  - Extraocular muscle paresis [None]
  - VIIth nerve paralysis [None]
  - Eye pain [None]
  - Eye infection [None]
  - Ocular hyperaemia [None]
